FAERS Safety Report 21374722 (Version 1)
Quarter: 2022Q3

REPORT INFORMATION
  Report Type: Spontaneous
  Country: US (occurrence: US)
  Receive Date: 20220926
  Receipt Date: 20220926
  Transmission Date: 20221027
  Serious: No
  Sender: FDA-Public Use
  Company Number: US-ALLERGAN-2202122US

PATIENT
  Sex: Female
  Weight: 45.351 kg

DRUGS (1)
  1. LEXAPRO [Suspect]
     Active Substance: ESCITALOPRAM OXALATE
     Indication: Product used for unknown indication
     Dosage: 20 MG DAILY
     Dates: start: 2021

REACTIONS (11)
  - Fear [Not Recovered/Not Resolved]
  - Thinking abnormal [Not Recovered/Not Resolved]
  - Product administration interrupted [Unknown]
  - Mental disorder [Not Recovered/Not Resolved]
  - Chills [Not Recovered/Not Resolved]
  - Pupil fixed [Not Recovered/Not Resolved]
  - Heart rate increased [Not Recovered/Not Resolved]
  - Weight decreased [Unknown]
  - Mania [Not Recovered/Not Resolved]
  - Hallucination, auditory [Recovered/Resolved]
  - Confusional state [Not Recovered/Not Resolved]

NARRATIVE: CASE EVENT DATE: 20210101
